FAERS Safety Report 6865394-6 (Version None)
Quarter: 2010Q3

REPORT INFORMATION
  Report Type: 
  Country: None (occurrence: None)
  Receive Date: 20100721
  Receipt Date: 20080420
  Transmission Date: 20110219
  Serious: No
  Sender: FDA-Public Use
  Company Number: US-PFIZER INC-2008035587

PATIENT
  Sex: Male
  Weight: 113.63 kg

DRUGS (3)
  1. CHANTIX [Suspect]
     Dates: start: 20080401
  2. SPIRIVA [Concomitant]
  3. LISINOPRIL [Concomitant]
     Dates: end: 20080401

REACTIONS (1)
  - JOINT SWELLING [None]
